FAERS Safety Report 19251483 (Version 3)
Quarter: 2022Q3

REPORT INFORMATION
  Report Type: Spontaneous
  Country: US (occurrence: US)
  Receive Date: 20210513
  Receipt Date: 20220730
  Transmission Date: 20221027
  Serious: No
  Sender: FDA-Public Use
  Company Number: US-SA-SAC20210511000428

PATIENT
  Sex: Male

DRUGS (1)
  1. DUPIXENT [Suspect]
     Active Substance: DUPILUMAB
     Indication: Dermatitis atopic
     Dosage: 300 MG, QOW
     Route: 058
     Dates: start: 20190709

REACTIONS (5)
  - Eczema [Unknown]
  - Dermatitis atopic [Unknown]
  - Rash papular [Unknown]
  - Cardiac operation [Unknown]
  - Surgery [Unknown]
